FAERS Safety Report 12335305 (Version 3)
Quarter: 2016Q2

REPORT INFORMATION
  Report Type: Report from Study
  Country: US (occurrence: US)
  Receive Date: 20160504
  Receipt Date: 20160526
  Transmission Date: 20160815
  Serious: Yes (Other)
  Sender: FDA-Public Use
  Company Number: US-EXELIXIS-CABO-16006149

PATIENT
  Sex: Female

DRUGS (7)
  1. ALTACE [Concomitant]
     Active Substance: RAMIPRIL
  2. DILTIAZEM [Concomitant]
     Active Substance: DILTIAZEM
  3. SYNTHROID [Concomitant]
     Active Substance: LEVOTHYROXINE SODIUM
  4. AMLODIPINE [Concomitant]
     Active Substance: AMLODIPINE BESYLATE
  5. COMETRIQ [Suspect]
     Active Substance: CABOZANTINIB S-MALATE
     Indication: THYROID CANCER
     Dosage: 140 MG, QD
     Route: 048
     Dates: start: 20160313, end: 201604
  6. CENTRUM [Concomitant]
     Active Substance: VITAMINS
  7. CALCIUM [Concomitant]
     Active Substance: CALCIUM

REACTIONS (12)
  - Pain in extremity [Unknown]
  - Abdominal pain upper [Not Recovered/Not Resolved]
  - Peripheral swelling [Unknown]
  - Back pain [Recovering/Resolving]
  - General physical health deterioration [Unknown]
  - Blood pressure increased [Unknown]
  - Dyspepsia [Unknown]
  - Erythema [Unknown]
  - Eating disorder [Unknown]
  - Joint swelling [Unknown]
  - Colitis [Unknown]
  - Musculoskeletal stiffness [Not Recovered/Not Resolved]
